FAERS Safety Report 7247679-7 (Version None)
Quarter: 2011Q1

REPORT INFORMATION
  Report Type: 
  Country: None (occurrence: None)
  Receive Date: 20110127
  Receipt Date: 20110120
  Transmission Date: 20110831
  Serious: Yes (Other)
  Sender: FDA-Public Use
  Company Number: US-GENZYME-THYM-1002280

PATIENT
  Sex: Male

DRUGS (5)
  1. THYMOGLOBULIN [Suspect]
     Dosage: 1.5 MG/KG, UNK
     Route: 042
  2. THYMOGLOBULIN [Suspect]
     Indication: PROPHYLAXIS AGAINST TRANSPLANT REJECTION
     Dosage: 1.5 MG/KG, UNK
     Route: 042
  3. THYMOGLOBULIN [Suspect]
     Dosage: 1.5 MG/KG, UNK
     Route: 042
  4. THYMOGLOBULIN [Suspect]
     Dosage: 1.5 MG/KG, UNK
     Route: 042
  5. THYMOGLOBULIN [Suspect]
     Dosage: 1.5 MG/KG, UNK
     Route: 042

REACTIONS (3)
  - COAGULOPATHY [None]
  - HAEMATOMA [None]
  - ADVERSE DRUG REACTION [None]
